FAERS Safety Report 21406158 (Version 1)
Quarter: 2022Q4

REPORT INFORMATION
  Report Type: Spontaneous
  Country: CA (occurrence: None)
  Receive Date: 20221004
  Receipt Date: 20221004
  Transmission Date: 20230112
  Serious: Yes (Other)
  Sender: FDA-Public Use
  Company Number: CA-ROCHE-3191418

PATIENT
  Age: 48 Year
  Sex: Female
  Weight: 54 kg

DRUGS (12)
  1. RITUXIMAB [Suspect]
     Active Substance: RITUXIMAB
     Indication: Rheumatoid arthritis
     Route: 041
  2. CALCIUM [Concomitant]
     Active Substance: CALCIUM
  3. DAPSONE [Concomitant]
     Active Substance: DAPSONE
  4. DEXILANT [Concomitant]
     Active Substance: DEXLANSOPRAZOLE
  5. GLICLAZIDE [Concomitant]
     Active Substance: GLICLAZIDE
  6. IRON [Concomitant]
     Active Substance: IRON
  7. PREDNISONE [Concomitant]
     Active Substance: PREDNISONE
  8. ROSUVASTATIN CALCIUM [Concomitant]
     Active Substance: ROSUVASTATIN CALCIUM
  9. TYLENOL [Concomitant]
     Active Substance: ACETAMINOPHEN
  10. VITAMIN B COMPLEX [Concomitant]
     Active Substance: CYANOCOBALAMIN\DEXPANTHENOL\NIACINAMIDE\PYRIDOXINE HYDROCHLORIDE\RIBOFLAVIN 5^-PHOSPHATE SODIUM\THIA
  11. VITAMIN D3 [Concomitant]
     Active Substance: CHOLECALCIFEROL
  12. VITAMIN C [Concomitant]
     Active Substance: ASCORBIC ACID

REACTIONS (5)
  - Blood glucose decreased [Recovered/Resolved]
  - Nail bed disorder [Recovered/Resolved]
  - Palpitations [Recovered/Resolved]
  - Thrombocytopenia [Recovered/Resolved]
  - Weight decreased [Recovered/Resolved]
